FAERS Safety Report 6693077-4 (Version None)
Quarter: 2010Q2

REPORT INFORMATION
  Report Type: 
  Country: None (occurrence: None)
  Receive Date: 20100420
  Receipt Date: 20100412
  Transmission Date: 20101027
  Serious: Yes (Other)
  Sender: FDA-Public Use
  Company Number: 2010SP021740

PATIENT
  Age: 86 Year
  Sex: Female

DRUGS (5)
  1. MIRALAX [Suspect]
     Indication: CONSTIPATION
     Dosage: PO
     Route: 048
  2. PANTOPRAZOLE SODIUM [Concomitant]
  3. LEXAPRO [Concomitant]
  4. WARFARIN SODIUM [Concomitant]
  5. SYNTHROID [Concomitant]

REACTIONS (1)
  - RECTAL HAEMORRHAGE [None]
